FAERS Safety Report 15986325 (Version 1)
Quarter: 2019Q1

REPORT INFORMATION
  Report Type: Spontaneous
  Country: US (occurrence: US)
  Receive Date: 20190220
  Receipt Date: 20190220
  Transmission Date: 20190418
  Serious: Yes (Other)
  Sender: FDA-Public Use
  Company Number: PHEH2019US006777

PATIENT
  Age: 21 Year
  Sex: Male

DRUGS (1)
  1. ZYKADIA [Suspect]
     Active Substance: CERITINIB
     Indication: INFLAMMATORY MYOFIBROBLASTIC TUMOUR
     Dosage: UNK
     Route: 065
     Dates: start: 20171204

REACTIONS (4)
  - Product use in unapproved indication [Unknown]
  - Treatment failure [Unknown]
  - Inflammatory myofibroblastic tumour [Unknown]
  - Recurrent cancer [Unknown]
